FAERS Safety Report 12374698 (Version 1)
Quarter: 2016Q2

REPORT INFORMATION
  Report Type: Spontaneous
  Country: US (occurrence: None)
  Receive Date: 20160516
  Receipt Date: 20160516
  Transmission Date: 20160815
  Serious: No
  Sender: FDA-Public Use
  Company Number: None

PATIENT
  Age: 74 Year
  Sex: Female

DRUGS (4)
  1. GINKO BILOBA [Concomitant]
     Active Substance: GINKGO
  2. CYCLOPHOSPHAMIDE 50MG, CAP ROXANE LABORATORIES INC [Suspect]
     Active Substance: CYCLOPHOSPHAMIDE
     Indication: HYPOTHYROIDISM
     Dosage: 50MG X 6 =300MG QWK PO
     Route: 048
     Dates: start: 201604
  3. KEPPRA [Concomitant]
     Active Substance: LEVETIRACETAM
  4. LEVOTHROXINE SODIUM [Concomitant]
     Active Substance: LEVOTHYROXINE SODIUM

REACTIONS (1)
  - Diarrhoea [None]

NARRATIVE: CASE EVENT DATE: 2016
